FAERS Safety Report 14333492 (Version 1)
Quarter: 2017Q4

REPORT INFORMATION
  Report Type: Report from Study
  Country: BE (occurrence: BE)
  Receive Date: 20171228
  Receipt Date: 20171228
  Transmission Date: 20180321
  Serious: Yes (Life-Threatening, Hospitalization)
  Sender: FDA-Public Use
  Company Number: BE-ASTRAZENECA-2015SF19635

PATIENT
  Age: 25998 Day
  Sex: Male

DRUGS (27)
  1. MEDI4736 [Suspect]
     Active Substance: DURVALUMAB
     Indication: LUNG NEOPLASM MALIGNANT
     Route: 042
     Dates: start: 20150903, end: 20150903
  2. MEDI4736 [Suspect]
     Active Substance: DURVALUMAB
     Indication: LUNG NEOPLASM MALIGNANT
     Route: 042
     Dates: start: 20150917, end: 20150917
  3. LODOZ [Concomitant]
     Active Substance: BISOPROLOL FUMARATE\HYDROCHLOROTHIAZIDE
     Indication: HYPERTENSION
     Route: 048
     Dates: end: 20151007
  4. CALADRYL [Concomitant]
     Active Substance: CALAMINE\DIPHENHYDRAMINE HYDROCHLORIDE\FERRIC OXIDE RED\PRAMOXINE HYDROCHLORIDE\ZINC OXIDE
     Indication: PRURITUS
     Dosage: 1 PUFF TID
     Route: 003
     Dates: start: 20150903
  5. SOLU-MEDROL [Concomitant]
     Active Substance: METHYLPREDNISOLONE SODIUM SUCCINATE
     Indication: PERICARDIAL EFFUSION
     Route: 042
     Dates: start: 20151012, end: 20151013
  6. ISOTEN [Concomitant]
     Indication: HYPERTENSION
     Route: 048
     Dates: start: 20151008
  7. LASIX [Concomitant]
     Active Substance: FUROSEMIDE
     Indication: OEDEMA PERIPHERAL
     Route: 048
     Dates: start: 20150824
  8. CORDARONE [Concomitant]
     Active Substance: AMIODARONE HYDROCHLORIDE
     Indication: ATRIAL FIBRILLATION
     Route: 048
     Dates: start: 20151014, end: 20151104
  9. LIDOCAINE. [Concomitant]
     Active Substance: LIDOCAINE
     Indication: COUGH
     Dosage: 2.0ML AS REQUIRED
     Route: 055
     Dates: start: 20150706
  10. CLEXANE [Concomitant]
     Active Substance: ENOXAPARIN SODIUM
     Indication: PULMONARY EMBOLISM
     Route: 042
     Dates: start: 20151008, end: 20151106
  11. ACTRAPID [Concomitant]
     Active Substance: INSULIN HUMAN
     Indication: HYPERGLYCAEMIA
     Route: 048
     Dates: start: 20151008
  12. MEDI4736 [Suspect]
     Active Substance: DURVALUMAB
     Indication: LUNG NEOPLASM MALIGNANT
     Route: 042
     Dates: start: 20150820, end: 20150820
  13. OMEPRAZOLE. [Concomitant]
     Active Substance: OMEPRAZOLE
     Indication: GASTRIC MUCOSA ERYTHEMA
     Route: 048
     Dates: end: 20151007
  14. XYZALL [Concomitant]
     Active Substance: LEVOCETIRIZINE DIHYDROCHLORIDE
     Indication: PRURITUS
     Route: 048
     Dates: start: 20150824
  15. SOLU-MEDROL [Concomitant]
     Active Substance: METHYLPREDNISOLONE SODIUM SUCCINATE
     Indication: PERICARDIAL EFFUSION
     Route: 042
     Dates: start: 20151008, end: 20151011
  16. MEDI4736 [Suspect]
     Active Substance: DURVALUMAB
     Indication: LUNG NEOPLASM MALIGNANT
     Route: 042
     Dates: start: 20150806, end: 20150806
  17. SOLU-MEDROL [Concomitant]
     Active Substance: METHYLPREDNISOLONE SODIUM SUCCINATE
     Indication: PERICARDIAL EFFUSION
     Route: 048
     Dates: start: 20151014, end: 20151026
  18. TRADONAL [Concomitant]
     Active Substance: TRAMADOL HYDROCHLORIDE
     Indication: NON-CARDIAC CHEST PAIN
     Route: 048
     Dates: start: 20151001
  19. MEDI4736 [Suspect]
     Active Substance: DURVALUMAB
     Indication: LUNG NEOPLASM MALIGNANT
     Route: 042
     Dates: start: 20150724, end: 20150724
  20. PARACODINE [Concomitant]
     Active Substance: DIHYDROCODEINE BITARTRATE
     Indication: COUGH
     Route: 048
     Dates: start: 20150702
  21. MAGNESIUM CITRATE. [Concomitant]
     Active Substance: MAGNESIUM CITRATE
     Indication: HYPOMAGNESAEMIA
     Route: 048
     Dates: start: 20150820
  22. FLIXOTIDE [Concomitant]
     Active Substance: FLUTICASONE PROPIONATE
     Indication: COUGH
     Dosage: 1 PUFF TID
     Route: 055
     Dates: start: 20151008
  23. OMEPRAZOLE. [Concomitant]
     Active Substance: OMEPRAZOLE
     Indication: GASTRIC MUCOSA ERYTHEMA
     Route: 048
     Dates: start: 20151008, end: 20151008
  24. DAFALGAN [Concomitant]
     Active Substance: ACETAMINOPHEN
     Indication: NON-CARDIAC CHEST PAIN
     Route: 048
     Dates: start: 20151001
  25. COMBIVENT AEROSOL [Concomitant]
     Indication: COUGH
     Route: 055
     Dates: start: 20151008
  26. SINTROM [Concomitant]
     Active Substance: ACENOCOUMAROL
     Indication: PULMONARY EMBOLISM
     Route: 048
     Dates: start: 20151010
  27. COLCHICINE. [Concomitant]
     Active Substance: COLCHICINE
     Indication: GOUT
     Route: 048
     Dates: start: 20151012, end: 20151031

REACTIONS (1)
  - Thrombocytopenia [Not Recovered/Not Resolved]

NARRATIVE: CASE EVENT DATE: 20151019
